FAERS Safety Report 21096146 (Version 4)
Quarter: 2023Q2

REPORT INFORMATION
  Report Type: Spontaneous
  Country: US (occurrence: US)
  Receive Date: 20220718
  Receipt Date: 20230619
  Transmission Date: 20230721
  Serious: Yes (Hospitalization, Other)
  Sender: FDA-Public Use
  Company Number: US-SMITH AND NEPHEW, INC-2022SMT00042

PATIENT
  Age: 33 Year
  Sex: Female

DRUGS (4)
  1. COLLAGENASE SANTYL [Suspect]
     Active Substance: COLLAGENASE CLOSTRIDIUM HISTOLYTICUM
     Indication: Wound
     Dosage: UNK
     Dates: start: 2021
  2. COLLAGENASE SANTYL [Suspect]
     Active Substance: COLLAGENASE CLOSTRIDIUM HISTOLYTICUM
     Dosage: UNK
  3. NEOSPORIN [Suspect]
     Active Substance: BACITRACIN ZINC\NEOMYCIN SULFATE\POLYMYXIN B SULFATE
     Dosage: UNK
  4. SODIUM HYPOCHLORITE [Suspect]
     Active Substance: SODIUM HYPOCHLORITE
     Dosage: UNK
     Route: 061

REACTIONS (7)
  - Wound infection [Unknown]
  - Wound complication [Unknown]
  - Wound contamination [Unknown]
  - Leukaemia [Unknown]
  - Skin ulcer [Unknown]
  - Rash [Unknown]
  - Product dose omission issue [Not Recovered/Not Resolved]

NARRATIVE: CASE EVENT DATE: 20220703
